FAERS Safety Report 17658836 (Version 2)
Quarter: 2020Q2

REPORT INFORMATION
  Report Type: Spontaneous
  Country: SI (occurrence: SI)
  Receive Date: 20200413
  Receipt Date: 20200612
  Transmission Date: 20200713
  Serious: Yes (Other)
  Sender: FDA-Public Use
  Company Number: SI-BRISTOL-MYERS SQUIBB COMPANY-BMS-2020-029286

PATIENT
  Sex: Male

DRUGS (3)
  1. SUMAMED [Concomitant]
     Active Substance: AZITHROMYCIN ANHYDROUS
     Indication: PRODUCT USED FOR UNKNOWN INDICATION
     Dosage: UNK
     Route: 065
  2. YERVOY [Suspect]
     Active Substance: IPILIMUMAB
     Indication: RENAL CELL CARCINOMA
     Dosage: 1 MILLIGRAM/KILOGRAM
     Route: 042
  3. OPDIVO [Suspect]
     Active Substance: NIVOLUMAB
     Indication: RENAL CELL CARCINOMA
     Dosage: 3 MILLIGRAM/KILOGRAM
     Route: 042

REACTIONS (7)
  - Myalgia [Unknown]
  - Pyrexia [Unknown]
  - Myasthenic syndrome [Unknown]
  - Rhabdomyolysis [Unknown]
  - Bone pain [Unknown]
  - Influenza like illness [Unknown]
  - Myocarditis [Unknown]

NARRATIVE: CASE EVENT DATE: 20200403
